FAERS Safety Report 10424742 (Version 4)
Quarter: 2015Q2

REPORT INFORMATION
  Report Type: Report from Study
  Country: US (occurrence: US)
  Receive Date: 20140902
  Receipt Date: 20150408
  Transmission Date: 20150821
  Serious: Yes (Hospitalization, Other)
  Sender: FDA-Public Use
  Company Number: US-SA-2014SA116073

PATIENT
  Age: 54 Year
  Sex: Female

DRUGS (2)
  1. AUBAGIO [Suspect]
     Active Substance: TERIFLUNOMIDE
     Indication: MULTIPLE SCLEROSIS
     Route: 048
     Dates: start: 20130323, end: 201503
  2. AUBAGIO [Suspect]
     Active Substance: TERIFLUNOMIDE
     Indication: MULTIPLE SCLEROSIS
     Route: 048
     Dates: start: 201503

REACTIONS (12)
  - Traumatic intracranial haemorrhage [Unknown]
  - Pneumonia [Recovering/Resolving]
  - Nightmare [Unknown]
  - Neck injury [Unknown]
  - Arthralgia [Recovering/Resolving]
  - Head injury [Unknown]
  - Back injury [Unknown]
  - Ligament rupture [Unknown]
  - Nuclear magnetic resonance imaging abnormal [Unknown]
  - Road traffic accident [Unknown]
  - Bronchitis [Unknown]
  - Joint injury [Unknown]

NARRATIVE: CASE EVENT DATE: 2014
